FAERS Safety Report 24177674 (Version 1)
Quarter: 2024Q3

REPORT INFORMATION
  Report Type: Spontaneous
  Country: CA (occurrence: None)
  Receive Date: 20240806
  Receipt Date: 20240806
  Transmission Date: 20241017
  Serious: Yes (Other)
  Sender: ASTRAZENECA
  Company Number: 2019SF91309

PATIENT
  Age: 48 Year
  Sex: Female

DRUGS (5)
  1. ACLIDINIUM BROMIDE [Suspect]
     Active Substance: ACLIDINIUM BROMIDE
     Indication: Product used for unknown indication
     Dosage: 1 PUFFS BID
     Route: 055
  2. SYMBICORT [Suspect]
     Active Substance: BUDESONIDE\FORMOTEROL FUMARATE DIHYDRATE
     Indication: Product used for unknown indication
     Dosage: 2 PUFFS BID, 2 DF, TWO TIMES A DAY
     Route: 055
  3. MEPOLIZUMAB [Suspect]
     Active Substance: MEPOLIZUMAB
     Indication: Product used for unknown indication
     Dosage: 100 MG, Z (MONTHLY)100.0MG UNKNOWN
     Route: 042
  4. MEPOLIZUMAB [Suspect]
     Active Substance: MEPOLIZUMAB
     Indication: Asthma
     Dosage: 100 MG, Z (MONTHLY)100.0MG UNKNOWN
     Route: 042
  5. NASONEX [Suspect]
     Active Substance: MOMETASONE FUROATE
     Indication: Product used for unknown indication
     Route: 065

REACTIONS (16)
  - Tachycardia [Unknown]
  - Asthma [Unknown]
  - Breast cancer [Not Recovered/Not Resolved]
  - Breast haemorrhage [Not Recovered/Not Resolved]
  - Breast mass [Unknown]
  - Galactostasis [Not Recovered/Not Resolved]
  - Lacrimal disorder [Recovering/Resolving]
  - Malaise [Not Recovered/Not Resolved]
  - Mastitis [Unknown]
  - Pain [Recovering/Resolving]
  - Pulmonary embolism [Unknown]
  - Pyrexia [Unknown]
  - Rhinorrhoea [Recovering/Resolving]
  - Total lung capacity decreased [Unknown]
  - Wheezing [Recovering/Resolving]
  - Illness [Recovering/Resolving]

NARRATIVE: CASE EVENT DATE: 20181108
